FAERS Safety Report 4591309-X (Version None)
Quarter: 2005Q1

REPORT INFORMATION
  Report Type: 
  Country: None (occurrence: None)
  Receive Date: 20050222
  Receipt Date: 20050208
  Transmission Date: 20050727
  Serious: Yes (Hospitalization, Other)
  Sender: FDA-Public Use
  Company Number: 2005S1000455

PATIENT
  Age: 39 Year
  Sex: Female

DRUGS (6)
  1. ESTRADIOL [Suspect]
     Indication: HORMONE REPLACEMENT THERAPY
     Dosage: 0.2 MG/.DAY, TRANSDERMAL
     Route: 062
     Dates: start: 20040101, end: 20050113
  2. CLONIDINE [Concomitant]
  3. PANTOPRAZOLE [Concomitant]
  4. VENLAFAXINE HCL [Concomitant]
  5. HYDROCHLOROTHIAZIDE [Concomitant]
  6. LOSARTAN POTASSIUM [Concomitant]

REACTIONS (3)
  - HYPERTROPHY BREAST [None]
  - SKIN DISCOLOURATION [None]
  - TRANSIENT ISCHAEMIC ATTACK [None]
